FAERS Safety Report 22286548 (Version 4)
Quarter: 2023Q2

REPORT INFORMATION
  Report Type: Report from Study
  Country: US (occurrence: US)
  Receive Date: 20230505
  Receipt Date: 20230623
  Transmission Date: 20230721
  Serious: Yes (Death, Hospitalization, Other)
  Sender: FDA-Public Use
  Company Number: US-ABBVIE-4753487

PATIENT
  Age: 60 Year
  Sex: Female

DRUGS (8)
  1. SKYRIZI [Suspect]
     Active Substance: RISANKIZUMAB-RZAA
     Indication: Psoriasis
     Dosage: WEEK 0
     Route: 058
     Dates: start: 20221212, end: 20221212
  2. SKYRIZI [Suspect]
     Active Substance: RISANKIZUMAB-RZAA
     Dosage: WEEK 4
     Route: 058
     Dates: start: 202301, end: 202301
  3. SKYRIZI [Suspect]
     Active Substance: RISANKIZUMAB-RZAA
     Dosage: LAST DOSE
     Route: 058
     Dates: start: 20230323, end: 20230323
  4. SYNTHROID [Concomitant]
     Active Substance: LEVOTHYROXINE SODIUM
     Indication: Product used for unknown indication
     Route: 048
     Dates: start: 20220721, end: 20230427
  5. COVID-19 Pfizer [Concomitant]
     Indication: COVID-19 immunisation
     Route: 030
  6. VENLAFAXINE [Concomitant]
     Active Substance: VENLAFAXINE HYDROCHLORIDE
     Indication: Product used for unknown indication
  7. PRILOSEC [Concomitant]
     Active Substance: OMEPRAZOLE MAGNESIUM
     Indication: Product used for unknown indication
     Dates: start: 20220721, end: 20230424
  8. VOLTAREN [Concomitant]
     Active Substance: DICLOFENAC SODIUM
     Indication: Product used for unknown indication
     Dosage: 1 PERCENTAGE

REACTIONS (12)
  - Creutzfeldt-Jakob disease [Fatal]
  - Pain [Recovered/Resolved]
  - Myelopathy [Unknown]
  - Fall [Unknown]
  - Ecchymosis [Unknown]
  - Ischaemia [Unknown]
  - Cough [Recovered/Resolved]
  - Pulmonary mass [Unknown]
  - Arthropod bite [Unknown]
  - Bladder dilatation [Unknown]
  - Muscular weakness [Unknown]
  - Back pain [Unknown]

NARRATIVE: CASE EVENT DATE: 20221101
